FAERS Safety Report 13682696 (Version 2)
Quarter: 2017Q2

REPORT INFORMATION
  Report Type: Spontaneous
  Country: US (occurrence: US)
  Receive Date: 20170623
  Receipt Date: 20170623
  Transmission Date: 20170830
  Serious: No
  Sender: FDA-Public Use
  Company Number: US-MALLINCKRODT-T201604318

PATIENT
  Age: 80 Year
  Sex: Female
  Weight: 59 kg

DRUGS (15)
  1. FOLIC ACID. [Concomitant]
     Active Substance: FOLIC ACID
     Dosage: 1MG TABLETS
  2. HYDROXYCHLOROQUINE [Concomitant]
     Active Substance: HYDROXYCHLOROQUINE
     Dosage: 200 MG, BID
  3. H.P. ACTHAR [Suspect]
     Active Substance: CORTICOTROPIN
     Indication: RHEUMATOID ARTHRITIS
     Dosage: 80 UNITS /1 ML 2X PER WEEK SUNDAY AND WEDNESDAY
     Route: 058
     Dates: start: 20160728
  4. BENADRYL [Concomitant]
     Active Substance: DIPHENHYDRAMINE HYDROCHLORIDE
  5. CIMZIA [Concomitant]
     Active Substance: CERTOLIZUMAB PEGOL
     Dosage: 200MG/ML KIT, MONTHLY
  6. LEVOTHYROXINE. [Concomitant]
     Active Substance: LEVOTHYROXINE
     Dosage: 200 MCG TID
  7. TRAMADOL. [Concomitant]
     Active Substance: TRAMADOL
     Dosage: 50 MG TABLETS
  8. CALCIUM [Concomitant]
     Active Substance: CALCIUM
  9. LISINOPRIL. [Concomitant]
     Active Substance: LISINOPRIL
     Dosage: 5 MG TABLETS
  10. PROCRIT [Concomitant]
     Active Substance: ERYTHROPOIETIN
  11. PREDNISONE. [Concomitant]
     Active Substance: PREDNISONE
     Dosage: 5MG TABLETS
  12. VITAMIN B12 [Concomitant]
     Active Substance: CYANOCOBALAMIN
  13. MULTI VITAMIN [Concomitant]
     Active Substance: VITAMINS
  14. OMEPRAZOLE. [Concomitant]
     Active Substance: OMEPRAZOLE
     Dosage: 20 MG, QD
  15. PROLIA [Concomitant]
     Active Substance: DENOSUMAB
     Dosage: 60MG/ML SOLUTION

REACTIONS (10)
  - Rectal haemorrhage [Unknown]
  - Abdominal pain upper [Unknown]
  - Dry mouth [Unknown]
  - Energy increased [Unknown]
  - Herpes zoster [Recovering/Resolving]
  - Fatigue [Not Recovered/Not Resolved]
  - Asthenia [Not Recovered/Not Resolved]
  - Oedema peripheral [Unknown]
  - Rash [Unknown]
  - Back pain [Unknown]

NARRATIVE: CASE EVENT DATE: 2016
